FAERS Safety Report 9455321 (Version 1)
Quarter: 2013Q3

REPORT INFORMATION
  Report Type: Spontaneous
  Country: GB (occurrence: GB)
  Receive Date: 20130813
  Receipt Date: 20130813
  Transmission Date: 20140515
  Serious: Yes (Life-Threatening, Disabling, Other)
  Sender: FDA-Public Use
  Company Number: GB-JNJFOC-20130804877

PATIENT
  Age: 59 Year
  Sex: Male
  Weight: 93 kg

DRUGS (17)
  1. TOPIRAMATE [Suspect]
     Indication: GRAND MAL CONVULSION
     Route: 048
     Dates: end: 201305
  2. TOPIRAMATE [Suspect]
     Indication: GRAND MAL CONVULSION
     Route: 048
     Dates: start: 20121016
  3. TOPIRAMATE [Suspect]
     Indication: EPILEPSY
     Route: 048
     Dates: end: 201305
  4. TOPIRAMATE [Suspect]
     Indication: EPILEPSY
     Route: 048
     Dates: start: 20121016
  5. TOPIRAMATE [Suspect]
     Indication: COMPLEX PARTIAL SEIZURES
     Route: 048
     Dates: end: 201305
  6. TOPIRAMATE [Suspect]
     Indication: COMPLEX PARTIAL SEIZURES
     Route: 048
     Dates: start: 20121016
  7. CANDESARTAN [Concomitant]
     Indication: HYPERTENSION
     Route: 065
  8. CANDESARTAN [Concomitant]
     Indication: DIABETES MELLITUS
     Route: 065
  9. DOXAZOSIN [Concomitant]
     Indication: HYPERTENSION
     Route: 064
  10. DOXAZOSIN [Concomitant]
     Indication: DIABETES MELLITUS
     Route: 064
  11. IMIPRAMINE [Concomitant]
     Indication: PSYCHIATRIC SYMPTOM
     Route: 065
  12. INSULIN [Concomitant]
     Indication: DIABETES MELLITUS
     Route: 065
  13. LEVETIRACETAM [Concomitant]
     Indication: EPILEPSY
     Route: 065
  14. METFORMIN [Concomitant]
     Indication: HYPERTENSION
     Route: 065
  15. METFORMIN [Concomitant]
     Indication: DIABETES MELLITUS
     Route: 065
  16. VALPROATE SODIUM [Concomitant]
     Indication: EPILEPSY
     Route: 065
  17. RISPERIDONE [Concomitant]
     Indication: PSYCHIATRIC SYMPTOM
     Route: 065

REACTIONS (3)
  - Substance-induced psychotic disorder [Recovered/Resolved]
  - Hallucination, auditory [Recovered/Resolved]
  - Delusion [Recovered/Resolved]
